FAERS Safety Report 6800950-2 (Version None)
Quarter: 2010Q2

REPORT INFORMATION
  Report Type: 
  Country: None (occurrence: None)
  Receive Date: 20100629
  Receipt Date: 20100618
  Transmission Date: 20101027
  Serious: Yes (Other)
  Sender: FDA-Public Use
  Company Number: PHHY2010IT40271

PATIENT
  Age: 74 Year
  Sex: Male

DRUGS (6)
  1. CARBAMAZEPINE [Suspect]
     Indication: CONVULSION
     Dosage: 100 MG, BID
  2. CARBAMAZEPINE [Suspect]
     Dosage: 200 MG, BID
  3. ATORVASTATIN CALCIUM [Concomitant]
     Dosage: UNK
  4. CLOPIDOGREL [Concomitant]
     Dosage: UNK
  5. ESOMEPRAZOLE [Concomitant]
     Dosage: UNK
  6. RAMIPRIL [Concomitant]
     Dosage: UNK

REACTIONS (8)
  - CONVULSION [None]
  - DRUG EFFECT DECREASED [None]
  - DYSARTHRIA [None]
  - GAIT DISTURBANCE [None]
  - HYPONATRAEMIA [None]
  - PETIT MAL EPILEPSY [None]
  - POLLAKIURIA [None]
  - SOMNOLENCE [None]
